FAERS Safety Report 7142048-2 (Version None)
Quarter: 2010Q4

REPORT INFORMATION
  Report Type: 
  Country: None (occurrence: None)
  Receive Date: 20101207
  Receipt Date: 20101201
  Transmission Date: 20110411
  Serious: Yes (Other)
  Sender: FDA-Public Use
  Company Number: B0686835A

PATIENT
  Age: 29 Year
  Sex: Male

DRUGS (8)
  1. ZIDOVUDINE [Suspect]
     Indication: HIV INFECTION
     Dosage: 500MG PER DAY
     Route: 048
  2. COTRIM [Suspect]
     Dosage: 1IUAX PER DAY
     Route: 048
  3. EFAVIRENZ [Concomitant]
     Dosage: 600MG PER DAY
     Route: 048
     Dates: start: 20101122
  4. LAMIVUDINE [Concomitant]
     Dosage: 50MG PER DAY
     Route: 048
  5. HYDROXYZINE [Concomitant]
     Dosage: 25MG PER DAY
     Route: 048
  6. SEVELAMER [Concomitant]
  7. OMEPRAZOLE [Concomitant]
  8. CYCLIZINE [Concomitant]

REACTIONS (1)
  - THROMBOCYTOPENIA [None]
